FAERS Safety Report 13190826 (Version 2)
Quarter: 2017Q1

REPORT INFORMATION
  Report Type: Report from Study
  Country: None (occurrence: US)
  Receive Date: 20170206
  Receipt Date: 20170227
  Transmission Date: 20170428
  Serious: Yes (Other)
  Sender: FDA-Public Use
  Company Number: US-ABBVIE-17P-163-1862707-00

PATIENT
  Age: 64 Year
  Sex: Female

DRUGS (2)
  1. MODERIBA [Suspect]
     Active Substance: RIBAVIRIN
     Indication: HEPATITIS C
     Route: 048
     Dates: start: 20170104
  2. VIEKIRA XR [Suspect]
     Active Substance: DASABUVIR SODIUM MONOHYDRATE\OMBITASVIR HEMINONAHYDRATE\PARITAPREVIR DIHYDRATE\RITONAVIR
     Indication: HEPATITIS C
     Route: 048
     Dates: start: 20170104

REACTIONS (7)
  - Gastric neoplasm [Unknown]
  - Feeling abnormal [Unknown]
  - Hypophagia [Unknown]
  - Jaundice [Unknown]
  - Anaemia [Unknown]
  - Gastric polyps [Unknown]
  - Ocular icterus [Unknown]

NARRATIVE: CASE EVENT DATE: 20170218
